FAERS Safety Report 6868175-2 (Version None)
Quarter: 2010Q3

REPORT INFORMATION
  Report Type: 
  Country: None (occurrence: None)
  Receive Date: 20100722
  Receipt Date: 20080514
  Transmission Date: 20110219
  Serious: No
  Sender: FDA-Public Use
  Company Number: US-PFIZER INC-2008042616

PATIENT
  Sex: Female
  Weight: 53.636 kg

DRUGS (2)
  1. CHANTIX [Suspect]
     Dates: start: 20070101, end: 20070101
  2. FEMARA [Concomitant]

REACTIONS (2)
  - ABDOMINAL PAIN UPPER [None]
  - VOMITING [None]
